FAERS Safety Report 19079854 (Version 1)
Quarter: 2021Q1

REPORT INFORMATION
  Report Type: Spontaneous
  Country: US (occurrence: US)
  Receive Date: 20210331
  Receipt Date: 20210331
  Transmission Date: 20210420
  Serious: No
  Sender: FDA-Public Use
  Company Number: US-SA-2021SA106258

PATIENT
  Sex: Male

DRUGS (10)
  1. RABEPRAZOLE SODIUM. [Concomitant]
     Active Substance: RABEPRAZOLE SODIUM
  2. PREDNISONE. [Concomitant]
     Active Substance: PREDNISONE
  3. XOLAIR [Concomitant]
     Active Substance: OMALIZUMAB
  4. CELLSEPT [Concomitant]
     Active Substance: MYCOPHENOLATE MOFETIL
  5. AMLODIPINE BESYLATE. [Concomitant]
     Active Substance: AMLODIPINE BESYLATE
  6. DUPIXENT [Suspect]
     Active Substance: DUPILUMAB
     Indication: IDIOPATHIC URTICARIA
     Dosage: 600 MG, QOW
  7. DUPIXENT [Suspect]
     Active Substance: DUPILUMAB
     Indication: ASTHMA
  8. ALLOPURINOL. [Concomitant]
     Active Substance: ALLOPURINOL
  9. CYCLOSPORINE. [Concomitant]
     Active Substance: CYCLOSPORINE
  10. CEPHALEXIN [CEFALEXIN SODIUM] [Concomitant]
     Active Substance: CEPHALEXIN

REACTIONS (2)
  - Product use in unapproved indication [Unknown]
  - Product use issue [Unknown]
